FAERS Safety Report 21783008 (Version 1)
Quarter: 2022Q4

REPORT INFORMATION
  Report Type: Spontaneous
  Country: FR (occurrence: FR)
  Receive Date: 20221227
  Receipt Date: 20221227
  Transmission Date: 20230113
  Serious: Yes (Other)
  Sender: FDA-Public Use
  Company Number: FR-MYLANLABS-2022M1144413

PATIENT
  Age: 8 Decade
  Sex: Male

DRUGS (3)
  1. CARBOPLATIN [Suspect]
     Active Substance: CARBOPLATIN
     Indication: Non-small cell lung cancer stage IV
     Dosage: UNK, CYCLE; AUC 5 D1 IN A 21-DAY CYCLE
     Route: 042
     Dates: start: 201802
  2. VINORELBINE [Suspect]
     Active Substance: VINORELBINE TARTRATE
     Indication: Non-small cell lung cancer stage IV
     Dosage: 30 MILLIGRAM/SQ. METER, CYCLE; D1 AND D8 IN A 21-DAY CYCLE
     Route: 042
     Dates: start: 201802
  3. NIVOLUMAB [Suspect]
     Active Substance: NIVOLUMAB
     Indication: Non-small cell lung cancer stage IV
     Dosage: 240 MILLIGRAM, Q2W; INTRAVENOUS (NOT SPECIFIED)
     Route: 042
     Dates: start: 201806

REACTIONS (2)
  - Drug ineffective [Unknown]
  - Disease progression [Unknown]

NARRATIVE: CASE EVENT DATE: 20180101
